FAERS Safety Report 17436058 (Version 9)
Quarter: 2021Q4

REPORT INFORMATION
  Report Type: Spontaneous
  Country: AT (occurrence: AT)
  Receive Date: 20200219
  Receipt Date: 20211007
  Transmission Date: 20220303
  Serious: Yes (Hospitalization, Other)
  Sender: FDA-Public Use
  Company Number: AT-AMGEN-AUTSP2020015787

PATIENT
  Age: 54 Year
  Sex: Female
  Weight: 75 kg

DRUGS (52)
  1. TRASTUZUMAB [Suspect]
     Active Substance: TRASTUZUMAB
     Indication: HER2 positive breast cancer
     Dosage: 600 MILLIGRAM, Q3WK
     Route: 041
     Dates: start: 20180328, end: 20180328
  2. TRASTUZUMAB [Suspect]
     Active Substance: TRASTUZUMAB
     Dosage: 408 MILLIGRAM, Q3WK
     Route: 042
     Dates: start: 20180423, end: 20180423
  3. TRASTUZUMAB [Suspect]
     Active Substance: TRASTUZUMAB
     Dosage: 384 MILLIGRAM, Q3WK
     Route: 042
     Dates: start: 20180515, end: 20180605
  4. TRASTUZUMAB [Suspect]
     Active Substance: TRASTUZUMAB
     Dosage: 372 MILLIGRAM, Q3WK
     Route: 042
     Dates: start: 20180626, end: 20181010
  5. TRASTUZUMAB [Suspect]
     Active Substance: TRASTUZUMAB
     Dosage: 378 MILLIGRAM, Q3WK
     Route: 042
     Dates: start: 20181102, end: 20181102
  6. TRASTUZUMAB [Suspect]
     Active Substance: TRASTUZUMAB
     Dosage: 378 MILLIGRAM, Q3WK
     Route: 041
     Dates: start: 20181123, end: 20181123
  7. TRASTUZUMAB [Suspect]
     Active Substance: TRASTUZUMAB
     Dosage: 378 MILLIGRAM, Q3WK
     Route: 041
     Dates: start: 20181214, end: 20190109
  8. TRASTUZUMAB [Suspect]
     Active Substance: TRASTUZUMAB
     Dosage: 600 MILLIGRAM, Q3WK
     Route: 041
     Dates: start: 20191011, end: 20191025
  9. TRASTUZUMAB [Suspect]
     Active Substance: TRASTUZUMAB
     Dosage: 1440 MILLIGRAM, Q3WK
     Route: 041
     Dates: start: 20190119, end: 20200129
  10. XGEVA [Suspect]
     Active Substance: DENOSUMAB
     Indication: Product used for unknown indication
     Dosage: UNK
     Route: 065
     Dates: start: 20191219, end: 20200410
  11. ABRAXANE [Suspect]
     Active Substance: PACLITAXEL
     Indication: HER2 positive breast cancer
     Dosage: 177.17 MILLIGRAM, QWK
     Route: 042
     Dates: start: 20180416
  12. PERTUZUMAB [Suspect]
     Active Substance: PERTUZUMAB
     Indication: HER2 positive breast cancer
     Dosage: 840 MILLIGRAM, Q3WK
     Route: 042
     Dates: start: 20180328, end: 20180328
  13. PERTUZUMAB [Suspect]
     Active Substance: PERTUZUMAB
     Dosage: 420 MILLIGRAM, Q3WK
     Route: 042
     Dates: start: 20181214, end: 20190109
  14. METHOTREXATE [Suspect]
     Active Substance: METHOTREXATE
     Indication: Breast cancer
     Dosage: 2.5 MILLIGRAM
     Route: 048
     Dates: start: 20200219
  15. PACLITAXEL [Suspect]
     Active Substance: PACLITAXEL
     Indication: Breast cancer
     Dosage: 147.76 MILLIGRAM, QWK
     Route: 042
     Dates: start: 20180328, end: 20180409
  16. PACLITAXEL [Suspect]
     Active Substance: PACLITAXEL
     Indication: HER2 positive breast cancer
     Dosage: 177.17 MILLIGRAM
     Route: 042
     Dates: start: 20180416
  17. PACLITAXEL [Suspect]
     Active Substance: PACLITAXEL
     Dosage: 172.67 MILLIGRAM, QWK
     Route: 042
     Dates: start: 20180515
  18. PACLITAXEL [Suspect]
     Active Substance: PACLITAXEL
     Dosage: 177.17 MILLIGRAM, QWK
     Route: 042
     Dates: start: 20180522, end: 20180529
  19. PACLITAXEL [Suspect]
     Active Substance: PACLITAXEL
     Dosage: 172.67 MILLIGRAM, QWK
     Route: 042
     Dates: start: 20180605, end: 20180605
  20. PACLITAXEL [Suspect]
     Active Substance: PACLITAXEL
     Dosage: 177.17 MILLIGRAM, QWK
     Route: 042
     Dates: start: 20180612, end: 20180619
  21. PACLITAXEL [Suspect]
     Active Substance: PACLITAXEL
     Dosage: 170.35 MILLIGRAM, QWK
     Route: 042
     Dates: start: 20180626, end: 20180718
  22. PACLITAXEL [Suspect]
     Active Substance: PACLITAXEL
     Dosage: 171.51 MILLIGRAM, QWK
     Route: 042
     Dates: start: 20181207, end: 20181221
  23. PACLITAXEL [Suspect]
     Active Substance: PACLITAXEL
     Dosage: 172.67 MILLIGRAM, QWK
     Route: 042
     Dates: start: 20190102, end: 20190102
  24. PACLITAXEL [Suspect]
     Active Substance: PACLITAXEL
     Dosage: 171.51 MILLIGRAM, QWK
     Route: 042
     Dates: start: 20190109, end: 20190109
  25. PACLITAXEL [Suspect]
     Active Substance: PACLITAXEL
     Dosage: 172.67 MILLIGRAM, QWK
     Route: 042
     Dates: start: 20190116, end: 20190116
  26. VINORELBINE TARTRATE [Suspect]
     Active Substance: VINORELBINE TARTRATE
     Indication: HER2 positive breast cancer
     Dosage: 50 MICROGRAM
     Route: 048
     Dates: start: 20191011, end: 20191025
  27. VINORELBINE [Suspect]
     Active Substance: VINORELBINE TARTRATE
     Indication: Breast cancer
     Dosage: 50 MILLIGRAM
     Route: 048
     Dates: start: 20191011, end: 20191025
  28. TAXOL [Suspect]
     Active Substance: PACLITAXEL
     Indication: HER2 positive breast cancer
     Dosage: 147.76 MILLIGRAM, QWK
     Route: 042
     Dates: start: 20180328
  29. NAVELBINE [Suspect]
     Active Substance: VINORELBINE TARTRATE
     Indication: HER2 positive breast cancer
     Dosage: 50 MICROGRAM
     Route: 048
     Dates: start: 20191011
  30. NAVELBINE [Suspect]
     Active Substance: VINORELBINE TARTRATE
     Dosage: 1440 MILLIGRAM
     Route: 048
     Dates: start: 20201008
  31. ADO-TRASTUZUMAB EMTANSINE [Suspect]
     Active Substance: ADO-TRASTUZUMAB EMTANSINE
     Indication: HER2 positive breast cancer
     Dosage: 230.4 MILLIGRAM, Q3WK
     Route: 042
     Dates: start: 20190131
  32. CYCLOPHOSPHAMIDE [Suspect]
     Active Substance: CYCLOPHOSPHAMIDE
     Indication: HER2 positive breast cancer
     Dosage: 2.5 MILLIGRAM, 0.5 WEEKS
     Route: 048
  33. CYCLOPHOSPHAMIDE [Suspect]
     Active Substance: CYCLOPHOSPHAMIDE
     Dosage: 50 MILLIGRAM, QD
     Route: 048
     Dates: start: 20200219
  34. CAPECITABINE [Suspect]
     Active Substance: CAPECITABINE
     Indication: Breast cancer
     Dosage: 500 MILLIGRAM
     Route: 048
     Dates: start: 20191126
  35. CAPECITABINE [Suspect]
     Active Substance: CAPECITABINE
     Indication: HER2 positive breast cancer
  36. NERATINIB [Suspect]
     Active Substance: NERATINIB
     Indication: Breast cancer
     Dosage: 1440 MILLIGRAM, QD
     Route: 048
     Dates: start: 20200108, end: 20200118
  37. KYTRIL [Concomitant]
     Active Substance: GRANISETRON HYDROCHLORIDE
     Indication: Product used for unknown indication
     Dosage: UNK
     Route: 065
     Dates: start: 20190628, end: 20190830
  38. PANTOPRAZOLE SODIUM [Concomitant]
     Active Substance: PANTOPRAZOLE SODIUM
     Indication: Product used for unknown indication
     Dosage: UNK
     Route: 065
     Dates: start: 20191011
  39. DEXPANTHENOL\HYALURONATE SODIUM [Concomitant]
     Active Substance: DEXPANTHENOL\HYALURONATE SODIUM
     Indication: Conjunctivitis
     Dosage: UNK
     Route: 065
     Dates: start: 20180615, end: 20180619
  40. DEXPANTHENOL\HYALURONATE SODIUM [Concomitant]
     Active Substance: DEXPANTHENOL\HYALURONATE SODIUM
     Dosage: UNK
     Route: 065
     Dates: start: 20180619
  41. DEXAMETHASONE [Concomitant]
     Active Substance: DEXAMETHASONE
     Indication: Product used for unknown indication
     Dosage: UNK
     Route: 065
     Dates: start: 20190628, end: 20190830
  42. CAL D VITA [Concomitant]
     Indication: Product used for unknown indication
     Dosage: UNK
     Route: 065
     Dates: start: 20190425, end: 20200410
  43. OCTENISEPT GEL [Concomitant]
     Indication: Onycholysis
     Dosage: UNK
     Route: 065
     Dates: start: 20180725
  44. ENTEROBENE [Concomitant]
     Dosage: UNK
     Dates: start: 20200108, end: 20200113
  45. METAMIZOLE SODIUM [Concomitant]
     Active Substance: METAMIZOLE SODIUM
     Dosage: UNK
     Dates: start: 20200224, end: 20200410
  46. ZOFRAN [Concomitant]
     Active Substance: ONDANSETRON HYDROCHLORIDE
     Dosage: UNK
     Dates: start: 20200309, end: 20200410
  47. HYDROMORPHONE HYDROCHLORIDE [Concomitant]
     Active Substance: HYDROMORPHONE HYDROCHLORIDE
     Dosage: UNK
     Dates: start: 20200228, end: 20200311
  48. HYDROMORPHONE HYDROCHLORIDE [Concomitant]
     Active Substance: HYDROMORPHONE HYDROCHLORIDE
     Dosage: UNK
     Dates: start: 20200311, end: 20200410
  49. DEXPANTHENOL [Concomitant]
     Active Substance: DEXPANTHENOL
     Indication: Onycholysis
     Dosage: UNK
     Dates: start: 20180616, end: 20180725
  50. DEXPANTHENOL [Concomitant]
     Active Substance: DEXPANTHENOL
     Indication: Conjunctivitis
     Dosage: UNK
     Dates: start: 20180725
  51. OCTENISEPT [OCTENIDINE HYDROCHLORIDE] [Concomitant]
     Indication: Onycholysis
     Dosage: UNK
     Dates: start: 20180615, end: 20180725
  52. HYDROMORPHONE HYDROCHLORIDE [Concomitant]
     Active Substance: HYDROMORPHONE HYDROCHLORIDE

REACTIONS (11)
  - Breast cancer metastatic [Recovering/Resolving]
  - Febrile neutropenia [Recovered/Resolved]
  - Dyspnoea [Recovered/Resolved]
  - Tumour pain [Recovered/Resolved]
  - Off label use [Unknown]
  - Overdose [Unknown]
  - Intentional product use issue [Unknown]
  - C-reactive protein increased [Recovered/Resolved]
  - Pain of skin [Recovered/Resolved]
  - Stomatitis [Recovered/Resolved]
  - Diarrhoea [Recovered/Resolved]

NARRATIVE: CASE EVENT DATE: 20190920
